FAERS Safety Report 16579379 (Version 1)
Quarter: 2019Q3

REPORT INFORMATION
  Report Type: Spontaneous
  Country: US (occurrence: US)
  Receive Date: 20190716
  Receipt Date: 20190716
  Transmission Date: 20191004
  Serious: No
  Sender: FDA-Public Use
  Company Number: US-MYLANLABS-2019M1060706

PATIENT
  Sex: Female

DRUGS (1)
  1. AMITRIPTYLINE HYDROCHLORIDE TABLETS, USP [Suspect]
     Active Substance: AMITRIPTYLINE HYDROCHLORIDE
     Indication: ANXIETY
     Dosage: UNK
     Route: 065
     Dates: start: 201905, end: 201905

REACTIONS (6)
  - Somnolence [Unknown]
  - Dysarthria [Unknown]
  - Memory impairment [Unknown]
  - Sluggishness [Unknown]
  - Product label on wrong product [Unknown]
  - Wrong product administered [Unknown]

NARRATIVE: CASE EVENT DATE: 201905
